FAERS Safety Report 8817843 (Version 1)
Quarter: 2012Q4

REPORT INFORMATION
  Report Type: 
  Country: US (occurrence: US)
  Receive Date: 20121004
  Receipt Date: 20121004
  Transmission Date: 20130627
  Serious: Yes (Death)
  Sender: FDA-Public Use
  Company Number: US-ROCHE-1130848

PATIENT
  Sex: Male

DRUGS (5)
  1. RITUXAN [Suspect]
     Indication: PANCYTOPENIA
     Route: 065
  2. RITUXAN [Suspect]
     Indication: MENINGITIS
  3. RITUXAN [Suspect]
     Indication: THROMBOCYTOPENIA
  4. RITUXAN [Suspect]
     Indication: POST TRANSFUSION PURPURA
  5. RITUXAN [Suspect]
     Indication: OFF LABEL USE

REACTIONS (4)
  - Death [Fatal]
  - Muscular weakness [Unknown]
  - Contusion [Unknown]
  - Decreased appetite [Unknown]
